APPROVED DRUG PRODUCT: LEUSTATIN
Active Ingredient: CLADRIBINE
Strength: 1MG/ML **Federal Register determination that product was not discontinued or withdrawn for safety or effectiveness reasons**
Dosage Form/Route: INJECTABLE;INJECTION
Application: N020229 | Product #001
Applicant: JANSSEN PHARMACEUTICALS INC
Approved: Feb 26, 1993 | RLD: Yes | RS: No | Type: DISCN